FAERS Safety Report 12197525 (Version 2)
Quarter: 2016Q2

REPORT INFORMATION
  Report Type: Report from Study
  Country: US (occurrence: US)
  Receive Date: 20160322
  Receipt Date: 20160415
  Transmission Date: 20160815
  Serious: No
  Sender: FDA-Public Use
  Company Number: US-AMGEN-USASP2016033393

PATIENT
  Age: 55 Year
  Sex: Female

DRUGS (1)
  1. ENBREL [Suspect]
     Active Substance: ETANERCEPT
     Indication: RHEUMATOID ARTHRITIS
     Dosage: UNK UNK, QWK
     Route: 065
     Dates: start: 20160225

REACTIONS (7)
  - Upper respiratory tract infection [Not Recovered/Not Resolved]
  - Oral mucosal eruption [Unknown]
  - Contusion [Unknown]
  - Device malfunction [Unknown]
  - Rash [Unknown]
  - Sinusitis [Unknown]
  - Underdose [Unknown]

NARRATIVE: CASE EVENT DATE: 2016
